FAERS Safety Report 9840898 (Version 1)
Quarter: 2014Q1

REPORT INFORMATION
  Report Type: Spontaneous
  Country: US (occurrence: None)
  Receive Date: 20140123
  Receipt Date: 20140123
  Transmission Date: 20141002
  Serious: No
  Sender: FDA-Public Use
  Company Number: None

PATIENT
  Age: 76 Year
  Sex: Male
  Weight: 89.81 kg

DRUGS (1)
  1. RITUXAN [Suspect]
     Indication: CHRONIC LYMPHOCYTIC LEUKAEMIA
     Dosage: 800MG Q4W IVSS
     Route: 042
     Dates: start: 20140120

REACTIONS (4)
  - Dizziness [None]
  - Feeling hot [None]
  - Infusion related reaction [None]
  - Blood pressure decreased [None]
